FAERS Safety Report 18548826 (Version 1)
Quarter: 2020Q4

REPORT INFORMATION
  Report Type: Other
  Country: US (occurrence: US)
  Receive Date: 20201126
  Receipt Date: 20201126
  Transmission Date: 20210114
  Serious: Yes (Other)
  Sender: FDA-Public Use
  Company Number: US-ROCHE-2719769

PATIENT
  Sex: Female
  Weight: 62.6 kg

DRUGS (3)
  1. XOLAIR [Suspect]
     Active Substance: OMALIZUMAB
  2. XOLAIR [Suspect]
     Active Substance: OMALIZUMAB
  3. XOLAIR [Suspect]
     Active Substance: OMALIZUMAB
     Indication: ASTHMA
     Route: 058

REACTIONS (6)
  - Systemic lupus erythematosus [Unknown]
  - Facial paralysis [Unknown]
  - Polyarthritis [Unknown]
  - Sjogren^s syndrome [Unknown]
  - Fibromyalgia [Unknown]
  - Polyneuropathy idiopathic progressive [Unknown]
